FAERS Safety Report 12467566 (Version 1)
Quarter: 2016Q2

REPORT INFORMATION
  Report Type: Spontaneous
  Country: US (occurrence: None)
  Receive Date: 20160614
  Receipt Date: 20160614
  Transmission Date: 20160815
  Serious: Yes (Hospitalization, Other)
  Sender: FDA-Public Use
  Company Number: None

PATIENT
  Age: 74 Year
  Sex: Female
  Weight: 100 kg

DRUGS (1)
  1. BIVALIRUDIN, 250MG/VIAL [Suspect]
     Active Substance: BIVALIRUDIN
     Indication: PERCUTANEOUS CORONARY INTERVENTION
     Route: 041
     Dates: start: 20160528, end: 20160528

REACTIONS (3)
  - Surgical procedure repeated [None]
  - Acute coronary syndrome [None]
  - Acute myocardial infarction [None]

NARRATIVE: CASE EVENT DATE: 20160528
